FAERS Safety Report 10091560 (Version 1)
Quarter: 2014Q2

REPORT INFORMATION
  Report Type: Spontaneous
  Country: US (occurrence: US)
  Receive Date: 20140421
  Receipt Date: 20140421
  Transmission Date: 20141212
  Serious: No
  Sender: FDA-Public Use
  Company Number: US-GILEAD-2014-0099168

PATIENT
  Sex: Female

DRUGS (2)
  1. SOVALDI [Suspect]
     Indication: HEPATITIS C
     Dosage: UNK
     Route: 065
  2. RIBAVIRIN [Concomitant]

REACTIONS (5)
  - Chapped lips [Unknown]
  - Lip haemorrhage [Unknown]
  - Lip exfoliation [Unknown]
  - Gingival disorder [Unknown]
  - Tongue disorder [Unknown]
